FAERS Safety Report 10510032 (Version 2)
Quarter: 2015Q1

REPORT INFORMATION
  Report Type: Spontaneous
  Country: US (occurrence: None)
  Receive Date: 20141008
  Receipt Date: 20150218
  Transmission Date: 20150720
  Serious: Yes (Hospitalization, Other)
  Sender: FDA-Public Use
  Company Number: ADR-2014-01829

PATIENT
  Age: 72 Year
  Sex: Male

DRUGS (2)
  1. LIORESAL [Suspect]
     Active Substance: BACLOFEN
     Indication: SPINAL CORD INJURY
  2. LIORESAL [Suspect]
     Active Substance: BACLOFEN
     Indication: MUSCLE SPASTICITY

REACTIONS (8)
  - Hand deformity [None]
  - Sepsis [None]
  - Device kink [None]
  - Urinary tract infection [None]
  - Condition aggravated [None]
  - Device occlusion [None]
  - Drug effect decreased [None]
  - Muscle spasticity [None]

NARRATIVE: CASE EVENT DATE: 20140719
